FAERS Safety Report 4342642-8 (Version None)
Quarter: 2004Q2

REPORT INFORMATION
  Report Type: 
  Country: None (occurrence: None)
  Receive Date: 20040421
  Receipt Date: 20040416
  Transmission Date: 20050107
  Serious: Yes (Hospitalization)
  Sender: FDA-Public Use
  Company Number: 200414168GDDC

PATIENT
  Age: 14 Year
  Sex: Male

DRUGS (2)
  1. MINIRIN ^FERRING^ [Suspect]
     Indication: ENURESIS
     Route: 048
     Dates: start: 20040212, end: 20040315
  2. CLOMIPRAMINE HCL [Concomitant]
     Indication: ENURESIS
     Route: 048

REACTIONS (2)
  - CONVULSION [None]
  - DRUG EFFECT DECREASED [None]
